FAERS Safety Report 22131200 (Version 1)
Quarter: 2023Q1

REPORT INFORMATION
  Report Type: Spontaneous
  Country: US (occurrence: US)
  Receive Date: 20230323
  Receipt Date: 20230323
  Transmission Date: 20230417
  Serious: No
  Sender: FDA-Public Use
  Company Number: US-ALLERGAN-2236828US

PATIENT
  Sex: Female

DRUGS (1)
  1. SUCRALFATE [Suspect]
     Active Substance: SUCRALFATE
     Indication: Gastric ulcer
     Dosage: 1 G
     Route: 048

REACTIONS (3)
  - Intercepted product dispensing error [Unknown]
  - Illness [Unknown]
  - Constipation [Unknown]
